FAERS Safety Report 8041961-1 (Version None)
Quarter: 2012Q1

REPORT INFORMATION
  Report Type: 
  Country: None (occurrence: None)
  Receive Date: 20120112
  Receipt Date: 20120111
  Transmission Date: 20120608
  Serious: Yes (Hospitalization)
  Sender: FDA-Public Use
  Company Number: PHHO2010US07680

PATIENT
  Sex: Male
  Weight: 83.6 kg

DRUGS (4)
  1. TACROLIMUS [Suspect]
     Indication: LIVER TRANSPLANT
     Dosage: 1 G, UNK
     Dates: start: 20090622, end: 20110626
  2. PROGRAF [Concomitant]
     Indication: LIVER TRANSPLANT
     Dosage: 1 MG, Q12H
     Dates: start: 20100622
  3. ZORTRESS [Suspect]
     Indication: LIVER TRANSPLANT
     Dosage: 1.5 MG, Q12H
     Route: 048
     Dates: start: 20090723, end: 20110526
  4. AUGMENTIN '125' [Suspect]
     Indication: SINUSITIS
     Dosage: 500 MG, QD
     Route: 048
     Dates: start: 20100929, end: 20101006

REACTIONS (9)
  - RENAL FAILURE ACUTE [None]
  - PYREXIA [None]
  - ALCOHOL ABUSE [None]
  - HEPATIC ENZYME INCREASED [None]
  - TRANSAMINASES INCREASED [None]
  - PANCYTOPENIA [None]
  - FALL [None]
  - HEPATIC STEATOSIS [None]
  - CONCOMITANT DISEASE PROGRESSION [None]
